FAERS Safety Report 25342466 (Version 1)
Quarter: 2025Q2

REPORT INFORMATION
  Report Type: Spontaneous
  Country: US (occurrence: US)
  Receive Date: 20250521
  Receipt Date: 20250521
  Transmission Date: 20250717
  Serious: No
  Sender: CATALYST PHARMA
  Company Number: US-CATALYST PHARMACEUTICALS-US-CATA-25-00418

PATIENT
  Age: 7 Year
  Sex: Male
  Weight: 38.549 kg

DRUGS (6)
  1. AGAMREE [Suspect]
     Active Substance: VAMOROLONE
     Indication: Duchenne muscular dystrophy
     Dosage: 4 ML ONCE DAILY
     Route: 048
     Dates: start: 20240314
  2. AGAMREE [Suspect]
     Active Substance: VAMOROLONE
     Dosage: 3.4 ML ONCE DAILY
     Route: 048
     Dates: start: 20250110
  3. EXONDYS [Concomitant]
     Indication: Duchenne muscular dystrophy
     Dosage: 2 ML ONCE A WEEK
     Route: 042
  4. VITAMIN D3 [Concomitant]
     Active Substance: CHOLECALCIFEROL
     Indication: Bone disorder
     Dosage: 2000 IU ONCE DAILY
     Route: 065
  5. CHILDRENS TYLENOL [Concomitant]
     Active Substance: ACETAMINOPHEN
     Indication: Ear pain
     Route: 065
  6. DUVYZAT [Concomitant]
     Active Substance: GIVINOSTAT
     Indication: Duchenne muscular dystrophy
     Dosage: 3.5 ML TWICE DAILY
     Route: 065

REACTIONS (1)
  - Cough [Not Recovered/Not Resolved]

NARRATIVE: CASE EVENT DATE: 20250301
